FAERS Safety Report 7639477-7 (Version None)
Quarter: 2011Q3

REPORT INFORMATION
  Report Type: 
  Country: None (occurrence: None)
  Receive Date: 20110727
  Receipt Date: 20110722
  Transmission Date: 20111222
  Serious: Yes (Hospitalization)
  Sender: FDA-Public Use
  Company Number: CA-GLAXOSMITHKLINE-A0938052A

PATIENT
  Sex: Female
  Weight: 49.1 kg

DRUGS (4)
  1. SPIRIVA [Concomitant]
  2. OTHER MEDICATIONS [Concomitant]
  3. ADVAIR DISKUS 100/50 [Suspect]
     Indication: EMPHYSEMA
     Dosage: 1PUFF TWICE PER DAY
     Route: 055
     Dates: start: 20101030
  4. PUFFERS [Concomitant]
     Indication: ILL-DEFINED DISORDER
     Dosage: 2PUFF TWICE PER DAY

REACTIONS (4)
  - WHITE BLOOD CELL COUNT DECREASED [None]
  - ORAL CANDIDIASIS [None]
  - RED BLOOD CELL COUNT DECREASED [None]
  - PNEUMONIA [None]
